FAERS Safety Report 15819476 (Version 5)
Quarter: 2019Q1

REPORT INFORMATION
  Report Type: Report from Study
  Country: None (occurrence: BR)
  Receive Date: 20190114
  Receipt Date: 20190330
  Transmission Date: 20190417
  Serious: Yes (Hospitalization, Disabling, Other)
  Sender: FDA-Public Use
  Company Number: BR-ABBVIE-19K-020-2620503-00

PATIENT
  Age: 39 Year
  Sex: Female
  Weight: 97 kg

DRUGS (5)
  1. SERTRALINE [Concomitant]
     Active Substance: SERTRALINE HYDROCHLORIDE
     Indication: ANXIETY
     Dates: end: 2015
  2. HUMIRA [Suspect]
     Active Substance: ADALIMUMAB
     Indication: RHEUMATOID ARTHRITIS
     Route: 058
     Dates: start: 20171127, end: 201803
  3. SERTRALINE [Concomitant]
     Active Substance: SERTRALINE HYDROCHLORIDE
     Indication: DEPRESSION
     Dates: start: 2019
  4. SERTRALINE [Concomitant]
     Active Substance: SERTRALINE HYDROCHLORIDE
     Indication: DEPRESSION
  5. CODEINE [Suspect]
     Active Substance: CODEINE
     Indication: KNEE OPERATION
     Route: 065
     Dates: start: 20181119

REACTIONS (19)
  - Post procedural discharge [Unknown]
  - Fall [Recovered/Resolved]
  - Patella fracture [Recovering/Resolving]
  - Asthenia [Unknown]
  - Depression [Unknown]
  - Impaired healing [Unknown]
  - Post procedural oedema [Unknown]
  - Procedural pain [Unknown]
  - Pain [Unknown]
  - Device loosening [Recovering/Resolving]
  - Abdominal hernia [Recovered/Resolved]
  - Myasthenia gravis [Not Recovered/Not Resolved]
  - Respiratory arrest [Unknown]
  - Syncope [Recovered/Resolved]
  - Immunodeficiency [Unknown]
  - Infection [Unknown]
  - Postoperative abscess [Unknown]
  - Gait disturbance [Unknown]
  - Post procedural inflammation [Unknown]

NARRATIVE: CASE EVENT DATE: 2018
